FAERS Safety Report 6432320-3 (Version None)
Quarter: 2009Q4

REPORT INFORMATION
  Report Type: 
  Country: None (occurrence: None)
  Receive Date: 20091105
  Receipt Date: 20091022
  Transmission Date: 20100525
  Serious: Yes (Hospitalization)
  Sender: FDA-Public Use
  Company Number: 8053836

PATIENT
  Age: 64 Year
  Sex: Female
  Weight: 65 kg

DRUGS (5)
  1. KEPPRA [Suspect]
     Indication: EPILEPSY
     Dosage: 1000 MG 2/D PO
     Route: 048
  2. TEGRETOL [Suspect]
     Indication: EPILEPSY
     Dosage: 400 MG 3/D PO
     Route: 048
  3. MYSOLINE [Suspect]
     Indication: EPILEPSY
     Dosage: 250 MG 3/D PO
     Route: 048
  4. APROVEL [Concomitant]
  5. CRESTOR [Concomitant]

REACTIONS (12)
  - BACK PAIN [None]
  - EXERCISE TOLERANCE DECREASED [None]
  - FATIGUE [None]
  - FOLATE DEFICIENCY [None]
  - GASTROINTESTINAL DISORDER [None]
  - GLOSSODYNIA [None]
  - IRON DEFICIENCY ANAEMIA [None]
  - MICROCYTIC ANAEMIA [None]
  - NAUSEA [None]
  - SKIN FISSURES [None]
  - VITAMIN D DEFICIENCY [None]
  - VOMITING [None]
